FAERS Safety Report 16162152 (Version 1)
Quarter: 2019Q2

REPORT INFORMATION
  Report Type: Spontaneous
  Country: BE (occurrence: BE)
  Receive Date: 20190405
  Receipt Date: 20190405
  Transmission Date: 20190711
  Serious: Yes (Other)
  Sender: FDA-Public Use
  Company Number: BE-SA-2019SA091737

PATIENT
  Sex: Female

DRUGS (1)
  1. AUBAGIO [Suspect]
     Active Substance: TERIFLUNOMIDE
     Dosage: UNK
     Dates: start: 201407

REACTIONS (3)
  - Hypertensive nephropathy [Unknown]
  - Blood pressure abnormal [Unknown]
  - Condition aggravated [Unknown]
